FAERS Safety Report 10512636 (Version 3)
Quarter: 2014Q4

REPORT INFORMATION
  Report Type: Spontaneous
  Country: AU (occurrence: AU)
  Receive Date: 20141011
  Receipt Date: 20141217
  Transmission Date: 20150528
  Serious: Yes (Death)
  Sender: FDA-Public Use
  Company Number: AU-MERCK-1410AUS003615

PATIENT
  Age: 45 Year

DRUGS (1)
  1. NOXAFIL [Suspect]
     Active Substance: POSACONAZOLE
     Dosage: UNK
     Route: 042

REACTIONS (2)
  - Multi-organ failure [None]
  - Death [Fatal]
